FAERS Safety Report 7530641-4 (Version None)
Quarter: 2011Q2

REPORT INFORMATION
  Report Type: 
  Country: None (occurrence: None)
  Receive Date: 20110607
  Receipt Date: 20110607
  Transmission Date: 20111010
  Serious: Yes (Hospitalization)
  Sender: FDA-Public Use
  Company Number: US-UCBSA-034679

PATIENT
  Sex: Female
  Weight: 97.7 kg

DRUGS (3)
  1. OMEPRAZOLE MAGNESIUM [Concomitant]
     Indication: GASTROOESOPHAGEAL REFLUX DISEASE
     Route: 048
     Dates: start: 20090101
  2. CIMZIA [Suspect]
     Indication: CROHN'S DISEASE
     Route: 058
  3. WELLBUTRIN XL [Concomitant]
     Indication: ANXIETY
     Route: 048
     Dates: start: 20110101

REACTIONS (3)
  - INCISION SITE INFECTION [None]
  - CROHN'S DISEASE [None]
  - LUNG INFECTION [None]
